FAERS Safety Report 10682281 (Version 2)
Quarter: 2015Q1

REPORT INFORMATION
  Report Type: Spontaneous
  Country: PL (occurrence: PL)
  Receive Date: 20141230
  Receipt Date: 20150127
  Transmission Date: 20150720
  Serious: Yes (Other)
  Sender: FDA-Public Use
  Company Number: PL-JNJFOC-20141217056

PATIENT
  Age: 32 Year
  Sex: Female

DRUGS (3)
  1. INFLIXIMAB, RECOMBINANT [Suspect]
     Active Substance: INFLIXIMAB
     Indication: CROHN^S DISEASE
     Dosage: 0, 2, 6
     Route: 042
  2. AZATHIOPRINE. [Concomitant]
     Active Substance: AZATHIOPRINE
     Route: 065
  3. MESALAMINE. [Concomitant]
     Active Substance: MESALAMINE
     Route: 065

REACTIONS (5)
  - Crohn^s disease [Recovered/Resolved]
  - Carbohydrate antigen 125 increased [Recovered/Resolved]
  - Protein total decreased [Recovered/Resolved]
  - Ascites [Recovered/Resolved]
  - C-reactive protein increased [Recovered/Resolved]
